FAERS Safety Report 20222187 (Version 1)
Quarter: 2021Q4

REPORT INFORMATION
  Report Type: Spontaneous
  Country: IT (occurrence: None)
  Receive Date: 20211223
  Receipt Date: 20211223
  Transmission Date: 20220303
  Serious: Yes (Other)
  Sender: FDA-Public Use
  Company Number: 2021A886721

PATIENT
  Age: 88 Year
  Sex: Female

DRUGS (6)
  1. OSIMERTINIB [Suspect]
     Active Substance: OSIMERTINIB
     Indication: Non-small cell lung cancer
     Route: 048
     Dates: start: 202106
  2. OSIMERTINIB [Suspect]
     Active Substance: OSIMERTINIB
     Indication: Non-small cell lung cancer
     Route: 048
     Dates: start: 20210623, end: 202112
  3. ATORVASTATIN [Concomitant]
     Active Substance: ATORVASTATIN
  4. TELMISARTAN [Concomitant]
     Active Substance: TELMISARTAN
  5. BISOPROLOL [Concomitant]
     Active Substance: BISOPROLOL
  6. MANIDIPINE [Concomitant]
     Active Substance: MANIDIPINE

REACTIONS (1)
  - Telangiectasia [Recovered/Resolved]

NARRATIVE: CASE EVENT DATE: 20210601
